FAERS Safety Report 7217061-7 (Version None)
Quarter: 2011Q1

REPORT INFORMATION
  Report Type: 
  Country: None (occurrence: None)
  Receive Date: 20110110
  Receipt Date: 20101231
  Transmission Date: 20110831
  Serious: Yes (Other)
  Sender: FDA-Public Use
  Company Number: CN-NOVOPROD-320965

PATIENT
  Age: 72 Year
  Sex: Male
  Weight: 80 kg

DRUGS (1)
  1. NOVOLIN R [Suspect]
     Indication: TYPE 2 DIABETES MELLITUS

REACTIONS (1)
  - ANAPHYLACTIC SHOCK [None]
